FAERS Safety Report 12867547 (Version 1)
Quarter: 2016Q4

REPORT INFORMATION
  Report Type: Spontaneous
  Country: US (occurrence: US)
  Receive Date: 20161020
  Receipt Date: 20161020
  Transmission Date: 20170207
  Serious: Yes (Other)
  Sender: FDA-Public Use
  Company Number: US-MYLANLABS-2016M1044125

PATIENT

DRUGS (1)
  1. TAMSULOSIN [Suspect]
     Active Substance: TAMSULOSIN
     Indication: PROSTATOMEGALY
     Dosage: 0.4 MG, QD
     Route: 048
     Dates: start: 20160718, end: 2016

REACTIONS (1)
  - Myasthenia gravis [Recovered/Resolved]

NARRATIVE: CASE EVENT DATE: 20160718
